FAERS Safety Report 9121182 (Version 1)
Quarter: 2013Q1

REPORT INFORMATION
  Report Type: Spontaneous
  Country: US (occurrence: US)
  Receive Date: 20130225
  Receipt Date: 20130225
  Transmission Date: 20140127
  Serious: No
  Sender: FDA-Public Use
  Company Number: US-009507513-1302USA011419

PATIENT
  Sex: Male

DRUGS (6)
  1. CORICIDIN HBP COUGH AND COLD [Suspect]
     Indication: NASOPHARYNGITIS
     Dosage: UNK, UNKNOWN
     Route: 048
  2. CORICIDIN HBP COUGH AND COLD [Suspect]
     Indication: COUGH
  3. CORICIDIN HBP COUGH AND COLD [Suspect]
     Indication: OROPHARYNGEAL PAIN
  4. CORICIDIN HBP FLU [Suspect]
     Indication: NASOPHARYNGITIS
     Dosage: UNK, UNKNOWN
     Route: 048
  5. CORICIDIN HBP FLU [Suspect]
     Indication: COUGH
  6. CORICIDIN HBP FLU [Suspect]
     Indication: OROPHARYNGEAL PAIN

REACTIONS (1)
  - Condition aggravated [Recovered/Resolved]
